FAERS Safety Report 5955481-9 (Version None)
Quarter: 2008Q4

REPORT INFORMATION
  Report Type: 
  Country: None (occurrence: None)
  Receive Date: 20081113
  Receipt Date: 20081113
  Transmission Date: 20090506
  Serious: No
  Sender: FDA-Public Use
  Company Number: None

PATIENT
  Age: 71 Year
  Sex: Male
  Weight: 117 kg

DRUGS (1)
  1. PROPRANOLOL [Suspect]
     Dosage: 20 MG BID PO
     Route: 048
     Dates: start: 20080926, end: 20081004

REACTIONS (2)
  - HALLUCINATION [None]
  - MENTAL STATUS CHANGES [None]
